FAERS Safety Report 16332992 (Version 1)
Quarter: 2019Q2

REPORT INFORMATION
  Report Type: Spontaneous
  Country: IT (occurrence: IT)
  Receive Date: 20190520
  Receipt Date: 20190520
  Transmission Date: 20190711
  Serious: Yes (Other)
  Sender: FDA-Public Use
  Company Number: IT-ENDO PHARMACEUTICALS INC-2019-104575

PATIENT
  Age: 79 Year
  Sex: Female

DRUGS (1)
  1. RHEUMATREX [Suspect]
     Active Substance: METHOTREXATE SODIUM
     Indication: RHEUMATOID ARTHRITIS
     Dosage: 15 MG, DAILY
     Route: 065

REACTIONS (8)
  - Subarachnoid haemorrhage [Unknown]
  - Toxicity to various agents [Recovering/Resolving]
  - Odynophagia [Unknown]
  - Agranulocytosis [Unknown]
  - Mucocutaneous ulceration [Recovered/Resolved]
  - Cerebral haematoma [Unknown]
  - Product administration error [Recovered/Resolved]
  - Pancytopenia [Recovering/Resolving]
